FAERS Safety Report 9464274 (Version 1)
Quarter: 2013Q3

REPORT INFORMATION
  Report Type: Spontaneous
  Country: US (occurrence: US)
  Receive Date: 20130819
  Receipt Date: 20130819
  Transmission Date: 20140515
  Serious: Yes (Other)
  Sender: FDA-Public Use
  Company Number: ALCN2013US004137

PATIENT
  Sex: 0

DRUGS (1)
  1. BSS [Suspect]
     Dosage: UNK, ONCE/SINGLE
     Dates: start: 20130725, end: 20130725

REACTIONS (2)
  - Eye inflammation [Recovered/Resolved]
  - Anterior chamber cell [Recovering/Resolving]
